FAERS Safety Report 10828623 (Version 1)
Quarter: 2015Q1

REPORT INFORMATION
  Report Type: Report from Study
  Country: PR (occurrence: PR)
  Receive Date: 20150219
  Receipt Date: 20150219
  Transmission Date: 20150721
  Serious: No
  Sender: FDA-Public Use
  Company Number: PR-ABBVIE-14P-131-1237748-00

PATIENT
  Sex: Female

DRUGS (2)
  1. HUMIRA [Suspect]
     Active Substance: ADALIMUMAB
     Indication: RHEUMATOID ARTHRITIS
     Route: 058
     Dates: start: 20131224
  2. HUMIRA [Suspect]
     Active Substance: ADALIMUMAB
     Route: 058

REACTIONS (11)
  - Breast discomfort [Recovered/Resolved]
  - Urticaria [Recovered/Resolved]
  - Acarodermatitis [Recovered/Resolved]
  - Pruritus allergic [Recovered/Resolved]
  - Laceration [Unknown]
  - Insomnia [Recovered/Resolved]
  - Malaise [Recovered/Resolved]
  - Feeling of despair [Unknown]
  - Skin discolouration [Unknown]
  - Genital discomfort [Recovered/Resolved]
  - Anxiety [Recovered/Resolved]
